FAERS Safety Report 6334670-8 (Version None)
Quarter: 2009Q3

REPORT INFORMATION
  Report Type: 
  Country: None (occurrence: None)
  Receive Date: 20090831
  Receipt Date: 20090730
  Transmission Date: 20100115
  Serious: No
  Sender: FDA-Public Use
  Company Number: US-BAYER-200928652NA

PATIENT
  Sex: Female

DRUGS (4)
  1. AVELOX [Suspect]
     Indication: VIRAL INFECTION
  2. FLORIA [Interacting]
     Indication: VIRAL INFECTION
  3. LISINOPRIL [Concomitant]
  4. GLYBURIDE [Concomitant]

REACTIONS (1)
  - DIZZINESS [None]
